FAERS Safety Report 20091323 (Version 1)
Quarter: 2021Q4

REPORT INFORMATION
  Report Type: Spontaneous
  Country: RU (occurrence: RU)
  Receive Date: 20211119
  Receipt Date: 20211119
  Transmission Date: 20220303
  Serious: Yes (Hospitalization, Other)
  Sender: FDA-Public Use
  Company Number: RU-ABBVIE-21K-251-4168465-00

PATIENT
  Age: 4 Year
  Sex: Male
  Weight: 21 kg

DRUGS (1)
  1. VALPROATE SODIUM [Suspect]
     Active Substance: VALPROATE SODIUM
     Indication: Product used for unknown indication
     Route: 048

REACTIONS (2)
  - Fatigue [Recovered/Resolved]
  - Inappropriate schedule of product administration [Unknown]
